FAERS Safety Report 7644902-1 (Version None)
Quarter: 2011Q3

REPORT INFORMATION
  Report Type: 
  Country: None (occurrence: None)
  Receive Date: 20110729
  Receipt Date: 20110715
  Transmission Date: 20111222
  Serious: Yes (Other)
  Sender: FDA-Public Use
  Company Number: DE-ROCHE-792820

PATIENT
  Age: 78 Year
  Sex: Female

DRUGS (11)
  1. FLUOROURACIL [Suspect]
     Indication: RECTAL CANCER METASTATIC
     Route: 042
     Dates: end: 20061101
  2. FLUOROURACIL [Suspect]
     Dosage: REDUCED TO 75% OF PREVIOUS DOSE
     Route: 042
     Dates: start: 20080526, end: 20100125
  3. AVASTIN [Suspect]
     Indication: RECTAL CANCER METASTATIC
     Dosage: 0,5 H INFUSION
     Route: 042
     Dates: start: 20070219, end: 20070521
  4. SODIUM FOLINATE [Suspect]
     Dosage: PALLIATIVE-SYSTEMIC FIRST LINE THERAPY
     Route: 042
     Dates: start: 20080317, end: 20100125
  5. FLUOROURACIL [Suspect]
     Dosage: 24 H INFUSION, AIO REGIMEN, 2 CYCLES
     Route: 042
     Dates: start: 20070219, end: 20070521
  6. IRINOTECAN HCL [Suspect]
     Indication: RECTAL CANCER METASTATIC
     Dosage: 1H INFUSION
     Route: 042
     Dates: start: 20070219, end: 20070521
  7. IRINOTECAN HCL [Suspect]
     Dosage: REDUCED TO 75 % OF INITIAL DOSING
     Route: 042
     Dates: start: 20080526, end: 20100125
  8. FLUOROURACIL [Suspect]
     Dosage: PALLIATIVE-SYSTEMIC FIRST LINE THERAPY
     Route: 042
     Dates: start: 20080317
  9. IRINOTECAN HCL [Suspect]
     Dosage: PALLIATIVE-SYSTEMIC FIRST LINE THERAPY
     Route: 042
     Dates: start: 20080317
  10. AVASTIN [Suspect]
     Route: 042
     Dates: start: 20080317, end: 20100125
  11. SODIUM FOLINATE [Suspect]
     Indication: RECTAL CANCER METASTATIC
     Dosage: 24 H INFUSION, AIO REGIMEN, 2 CYCLES
     Route: 042
     Dates: start: 20070219, end: 20070521

REACTIONS (7)
  - INTERVERTEBRAL DISC PROTRUSION [None]
  - GENERAL PHYSICAL HEALTH DETERIORATION [None]
  - METASTASES TO BONE [None]
  - HYPERTENSION [None]
  - URINARY RETENTION [None]
  - PULMONARY EMBOLISM [None]
  - URINARY TRACT INFECTION [None]
